FAERS Safety Report 25471754 (Version 1)
Quarter: 2025Q2

REPORT INFORMATION
  Report Type: Spontaneous
  Country: US (occurrence: US)
  Receive Date: 20250624
  Receipt Date: 20250624
  Transmission Date: 20250717
  Serious: Yes (Other)
  Sender: NOVO NORDISK
  Company Number: US-NOVOPROD-1459795

PATIENT
  Sex: Female

DRUGS (1)
  1. OZEMPIC [Suspect]
     Active Substance: SEMAGLUTIDE
     Indication: Type 2 diabetes mellitus
     Route: 058
     Dates: start: 2019

REACTIONS (4)
  - Breast mass [Recovered/Resolved]
  - Intestinal polyp [Not Recovered/Not Resolved]
  - Gastrointestinal disorder [Unknown]
  - Glycosylated haemoglobin abnormal [Unknown]
